FAERS Safety Report 8191577-1 (Version None)
Quarter: 2012Q1

REPORT INFORMATION
  Report Type: 
  Country: None (occurrence: None)
  Receive Date: 20120307
  Receipt Date: 20110629
  Transmission Date: 20120608
  Serious: No
  Sender: FDA-Public Use
  Company Number: US-ASTRAZENECA-2011SE39064

PATIENT
  Age: 67 Year
  Sex: Female

DRUGS (1)
  1. ZOMIG [Suspect]
     Indication: MIGRAINE
     Route: 045

REACTIONS (4)
  - DRUG DOSE OMISSION [None]
  - NERVOUSNESS [None]
  - FEAR [None]
  - PALPITATIONS [None]
